FAERS Safety Report 4527701-9 (Version None)
Quarter: 2004Q4

REPORT INFORMATION
  Report Type: 
  Country: None (occurrence: None)
  Receive Date: 20041215
  Receipt Date: 20041209
  Transmission Date: 20050328
  Serious: Yes (Hospitalization)
  Sender: FDA-Public Use
  Company Number: US-BRISTOL-MYERS SQUIBB COMPANY-12792727

PATIENT
  Age: 40 Year
  Sex: Female

DRUGS (14)
  1. SERZONE [Suspect]
     Dates: start: 20000101, end: 20020201
  2. BUSPAR [Suspect]
  3. MUSCLE RELAXANT [Suspect]
  4. NAPROXEN [Concomitant]
  5. CYCLOBENZAPRINE HCL [Concomitant]
  6. DOXEPIN HCL [Concomitant]
  7. LIPITOR [Concomitant]
  8. DISULFIRAM [Concomitant]
  9. PLAVIX [Concomitant]
  10. LITHIUM [Concomitant]
  11. TOPROL-XL [Concomitant]
  12. ULTRAM [Concomitant]
  13. HYDROCODONE + ACETAMINOPHEN [Concomitant]
  14. PRILOSEC [Concomitant]

REACTIONS (6)
  - ALANINE AMINOTRANSFERASE INCREASED [None]
  - ASPARTATE AMINOTRANSFERASE INCREASED [None]
  - CAROTID ARTERY STENOSIS [None]
  - NECK INJURY [None]
  - OVARIAN CYST [None]
  - ROAD TRAFFIC ACCIDENT [None]
